FAERS Safety Report 17139467 (Version 1)
Quarter: 2019Q4

REPORT INFORMATION
  Report Type: Report from Study
  Country: US (occurrence: US)
  Receive Date: 20191211
  Receipt Date: 20191211
  Transmission Date: 20200122
  Serious: Yes (Hospitalization)
  Sender: FDA-Public Use
  Company Number: US-TEVA-2019-US-1151431

PATIENT
  Age: 56 Year
  Sex: Male

DRUGS (21)
  1. IRINOTECAN [Suspect]
     Active Substance: IRINOTECAN
     Indication: COLORECTAL CANCER METASTATIC
     Dosage: 344 MG, FORTNIGHTY
     Route: 042
     Dates: start: 20180925, end: 20190709
  2. LEUCOVORIN. [Suspect]
     Active Substance: LEUCOVORIN
     Indication: COLORECTAL CANCER METASTATIC
     Dosage: 764 MG, FORTNIGHTY
     Route: 042
     Dates: start: 20180925, end: 20190709
  3. KEFLEX [Concomitant]
     Active Substance: CEPHALEXIN
     Dates: start: 201701
  4. VITAMIN B12 [Concomitant]
     Active Substance: CYANOCOBALAMIN
     Dates: start: 20190709
  5. XANAX [Concomitant]
     Active Substance: ALPRAZOLAM
     Dates: start: 20180724
  6. LOMOTIL [Concomitant]
     Active Substance: ATROPINE SULFATE\DIPHENOXYLATE HYDROCHLORIDE
     Dates: start: 20180926
  7. NEUPOGEN [Concomitant]
     Active Substance: FILGRASTIM
     Dates: start: 20190617
  8. BEVACIZUMAB. [Suspect]
     Active Substance: BEVACIZUMAB
     Indication: COLORECTAL CANCER METASTATIC
     Dosage: 358 MG, FORTNIGHTY
     Route: 042
     Dates: start: 20180925, end: 20190709
  9. LEVAQUIN [Concomitant]
     Active Substance: LEVOFLOXACIN
     Dates: start: 20190723
  10. BBI608 [Suspect]
     Active Substance: NAPABUCASIN
     Indication: COLORECTAL CANCER METASTATIC
     Route: 065
  11. AMLODIPINE [Concomitant]
     Active Substance: AMLODIPINE BESYLATE
     Dates: start: 201706
  12. GABAPENTIN. [Concomitant]
     Active Substance: GABAPENTIN
     Dates: start: 201801
  13. IMODIUM [Concomitant]
     Active Substance: LOPERAMIDE HYDROCHLORIDE
     Dates: start: 20180926
  14. MUCINEX [Concomitant]
     Active Substance: GUAIFENESIN
     Dates: start: 20190723
  15. LYRICA [Concomitant]
     Active Substance: PREGABALIN
     Dates: start: 201703
  16. 5-FLUOROURACIL [Suspect]
     Active Substance: FLUOROURACIL
     Dosage: 4584 MG, FORTNIGHTY
     Route: 042
     Dates: start: 20180925, end: 20190709
  17. OMEPRAZOLE. [Concomitant]
     Active Substance: OMEPRAZOLE
     Dates: start: 201707
  18. 5-FLUOROURACIL [Suspect]
     Active Substance: FLUOROURACIL
     Indication: COLORECTAL CANCER METASTATIC
     Dosage: 764 MG, FORTNIGHTY
     Route: 040
     Dates: start: 20180925, end: 20190709
  19. METOPROLOL TARTRATE. [Concomitant]
     Active Substance: METOPROLOL TARTRATE
     Dates: start: 201711
  20. ONDANSETRON [Concomitant]
     Active Substance: ONDANSETRON
     Dates: start: 201708
  21. CLARITIN [Concomitant]
     Active Substance: LORATADINE
     Dates: start: 20190617

REACTIONS (1)
  - Pneumonia [Recovered/Resolved]

NARRATIVE: CASE EVENT DATE: 20190724
